FAERS Safety Report 5839686-3 (Version None)
Quarter: 2008Q3

REPORT INFORMATION
  Report Type: 
  Country: None (occurrence: None)
  Receive Date: 20080811
  Receipt Date: 20080801
  Transmission Date: 20090109
  Serious: Yes (Hospitalization)
  Sender: FDA-Public Use
  Company Number: PHHY2008CA11743

PATIENT

DRUGS (1)
  1. EXELON [Suspect]
     Dosage: 4.6 MG/24 HOURS
     Route: 062
     Dates: start: 20080429, end: 20080608

REACTIONS (9)
  - ANOREXIA [None]
  - CONSTIPATION [None]
  - DEMENTIA [None]
  - DYSPHAGIA [None]
  - EXTRAPYRAMIDAL DISORDER [None]
  - HYPOTENSION [None]
  - LOSS OF CONSCIOUSNESS [None]
  - PARKINSONISM [None]
  - RESPIRATORY DISTRESS [None]
